FAERS Safety Report 9101226 (Version 1)
Quarter: 2013Q1

REPORT INFORMATION
  Report Type: Spontaneous
  Country: US (occurrence: US)
  Receive Date: 20130218
  Receipt Date: 20130218
  Transmission Date: 20140127
  Serious: No
  Sender: FDA-Public Use
  Company Number: US-BAYER-2013-018091

PATIENT
  Age: 45 Year
  Sex: Female
  Weight: 86 kg

DRUGS (3)
  1. BETASERON [Suspect]
     Indication: MULTIPLE SCLEROSIS
     Dosage: 0.25 MG, QOD
     Route: 058
  2. NUVARING [Concomitant]
  3. MULTIVITAMIN [Concomitant]

REACTIONS (1)
  - Injection site erythema [Unknown]
